FAERS Safety Report 7380455-3 (Version None)
Quarter: 2011Q1

REPORT INFORMATION
  Report Type: 
  Country: None (occurrence: None)
  Receive Date: 20110321
  Receipt Date: 20110302
  Transmission Date: 20110831
  Serious: Yes (Other)
  Sender: FDA-Public Use
  Company Number: 2011SP010007

PATIENT

DRUGS (3)
  1. GM-CSF [Suspect]
     Indication: CHRONIC MYELOID LEUKAEMIA
     Dosage: 125 MCG/M2, TIW, SC
     Route: 058
  2. PEGINTERFERON ALFA-2B [Suspect]
     Indication: CHRONIC MYELOID LEUKAEMIA
     Dosage: 0.5 MG/KG, QW, SC
     Route: 058
  3. IMATINIB [Suspect]
     Indication: CHRONIC MYELOID LEUKAEMIA
     Dosage: 400 MG, BID,

REACTIONS (9)
  - BONE MARROW FAILURE [None]
  - RASH [None]
  - INJECTION SITE REACTION [None]
  - INFLUENZA LIKE ILLNESS [None]
  - FATIGUE [None]
  - LIVER FUNCTION TEST ABNORMAL [None]
  - CARDIAC DISORDER [None]
  - NEUROTOXICITY [None]
  - HEADACHE [None]
